FAERS Safety Report 12357324 (Version 3)
Quarter: 2016Q3

REPORT INFORMATION
  Report Type: Spontaneous
  Country: US (occurrence: US)
  Receive Date: 20160511
  Receipt Date: 20160902
  Transmission Date: 20161109
  Serious: Yes (Hospitalization)
  Sender: FDA-Public Use
  Company Number: US-RELYPSA-RLY2016000611

PATIENT
  Sex: Male

DRUGS (12)
  1. OMEPRAZOLE. [Concomitant]
     Active Substance: OMEPRAZOLE
  2. VELTASSA [Suspect]
     Active Substance: PATIROMER
     Indication: HYPERKALAEMIA
     Dosage: 8.4 G, QD
     Route: 065
     Dates: start: 20160401
  3. CALCITRIOL. [Concomitant]
     Active Substance: CALCITRIOL
  4. METOPROLOL. [Concomitant]
     Active Substance: METOPROLOL
  5. MYRBETRIQ [Concomitant]
     Active Substance: MIRABEGRON
  6. LOSARTAN. [Concomitant]
     Active Substance: LOSARTAN
  7. DILTIAZEM. [Concomitant]
     Active Substance: DILTIAZEM
  8. SIMVASTATIN. [Concomitant]
     Active Substance: SIMVASTATIN
  9. PREDNISONE. [Suspect]
     Active Substance: PREDNISONE
     Indication: CHRONIC KIDNEY DISEASE
     Route: 065
  10. HUMALOG [Concomitant]
     Active Substance: INSULIN LISPRO
  11. LANTUS [Concomitant]
     Active Substance: INSULIN GLARGINE
  12. CLOTRIMAZOLE. [Concomitant]
     Active Substance: CLOTRIMAZOLE

REACTIONS (2)
  - Blood glucose increased [Recovered/Resolved]
  - Glycosylated haemoglobin increased [Not Recovered/Not Resolved]

NARRATIVE: CASE EVENT DATE: 2016
